FAERS Safety Report 10230524 (Version 1)
Quarter: 2014Q2

REPORT INFORMATION
  Report Type: Spontaneous
  Country: US (occurrence: US)
  Receive Date: 20140611
  Receipt Date: 20140611
  Transmission Date: 20141212
  Serious: No
  Sender: FDA-Public Use
  Company Number: US-INCYTE CORPORATION-2014IN001120

PATIENT
  Sex: Male

DRUGS (5)
  1. JAKAFI [Suspect]
     Indication: MYELOFIBROSIS
     Dosage: 5 MG, BID
     Route: 048
     Dates: start: 20121101, end: 20130131
  2. ALLOPURINOL [Concomitant]
  3. HYDROXYUREA [Concomitant]
  4. ASPIRIN [Concomitant]
     Dosage: 81 MG, UNK
  5. VITAMIN D                          /00107901/ [Concomitant]
     Dosage: UNK

REACTIONS (2)
  - Fatigue [Unknown]
  - Somnolence [Unknown]
